FAERS Safety Report 9985932 (Version 1)
Quarter: 2014Q1

REPORT INFORMATION
  Report Type: Report from Study
  Country: US (occurrence: US)
  Receive Date: 20140307
  Receipt Date: 20140307
  Transmission Date: 20141002
  Serious: Yes (Hospitalization, Other)
  Sender: FDA-Public Use
  Company Number: US-ABBVIE-13P-163-1086767-00

PATIENT
  Age: 58 Year
  Sex: Female

DRUGS (7)
  1. HUMIRA [Suspect]
     Indication: RHEUMATOID ARTHRITIS
     Route: 058
     Dates: start: 20130130, end: 20130507
  2. HUMIRA [Suspect]
     Indication: SYSTEMIC LUPUS ERYTHEMATOSUS
  3. PREDNISONE [Concomitant]
     Indication: RHEUMATOID ARTHRITIS
     Dosage: 20MG DAILY
     Route: 048
  4. PLAQUENIL [Concomitant]
     Indication: RHEUMATOID ARTHRITIS
     Route: 048
  5. AMLODIPINE [Concomitant]
     Indication: HYPERTENSION
     Dosage: 10MG DAILY
     Route: 048
  6. KEPTRA [Concomitant]
     Indication: CONVULSION
     Route: 048
  7. ESTRADIOL [Concomitant]
     Indication: HORMONE REPLACEMENT THERAPY
     Dosage: 0.5MG DAILY
     Route: 048

REACTIONS (9)
  - Chest pain [Recovering/Resolving]
  - Cough [Unknown]
  - Dyspnoea [Recovering/Resolving]
  - Pain [Unknown]
  - Musculoskeletal pain [Unknown]
  - Pain in extremity [Unknown]
  - Pancreatitis acute [Recovered/Resolved]
  - Pericardial effusion [Recovering/Resolving]
  - Hepatic enzyme increased [Recovered/Resolved]
